FAERS Safety Report 7834055-9 (Version None)
Quarter: 2011Q4

REPORT INFORMATION
  Report Type: 
  Country: None (occurrence: None)
  Receive Date: 20111024
  Receipt Date: 20111024
  Transmission Date: 20120403
  Serious: No
  Sender: FDA-Public Use
  Company Number: None

PATIENT
  Age: 44 Year
  Sex: Female
  Weight: 67.131 kg

DRUGS (2)
  1. ESTRADIOL [Concomitant]
     Indication: MENOPAUSAL SYMPTOMS
     Dates: start: 20110928, end: 20111019
  2. TESTOSTERONE [Suspect]
     Indication: MENOPAUSAL SYMPTOMS
     Dates: start: 20110928, end: 20111019

REACTIONS (2)
  - NAUSEA [None]
  - VOMITING [None]
